FAERS Safety Report 8323053-7 (Version None)
Quarter: 2012Q2

REPORT INFORMATION
  Report Type: 
  Country: None (occurrence: None)
  Receive Date: 20120430
  Receipt Date: 20120423
  Transmission Date: 20120825
  Serious: Yes (Hospitalization, Other)
  Sender: FDA-Public Use
  Company Number: BR-ABBOTT-12P-020-0926409-00

PATIENT
  Sex: Female

DRUGS (3)
  1. UNKNOWN DRUG [Concomitant]
     Indication: CARDIAC DISORDER
  2. UNKNOWN DRUG [Concomitant]
     Indication: HYPERTENSION
  3. HUMIRA [Suspect]
     Indication: RHEUMATOID ARTHRITIS

REACTIONS (2)
  - NEOPLASM [None]
  - HEADACHE [None]
